FAERS Safety Report 8088524-X (Version None)
Quarter: 2012Q1

REPORT INFORMATION
  Report Type: 
  Country: None (occurrence: None)
  Receive Date: 20120128
  Receipt Date: 20110511
  Transmission Date: 20120608
  Serious: No
  Sender: FDA-Public Use
  Company Number: US-ABBOTT-11P-163-0722902-00

PATIENT
  Sex: Male
  Weight: 118.95 kg

DRUGS (3)
  1. HUMIRA [Suspect]
     Indication: PSORIASIS
     Dates: start: 20110401
  2. UNKNOWN MEDICATION [Concomitant]
     Indication: ILL-DEFINED DISORDER
  3. UNKNOWN SALVE [Concomitant]
     Indication: PSORIASIS

REACTIONS (3)
  - PAIN [None]
  - PRURITUS [None]
  - PSORIASIS [None]
